FAERS Safety Report 13267521 (Version 1)
Quarter: 2017Q1

REPORT INFORMATION
  Report Type: Spontaneous
  Country: US (occurrence: US)
  Receive Date: 20170223
  Receipt Date: 20170223
  Transmission Date: 20170428
  Serious: Yes (Death)
  Sender: FDA-Public Use
  Company Number: None

PATIENT
  Sex: Male

DRUGS (1)
  1. STIVARGA [Suspect]
     Active Substance: REGORAFENIB
     Indication: COLON CANCER
     Dosage: 160MG DAILY ON DAYS 1 THROUGH 21 OF A 28 DAY CYCLE ORAL
     Route: 048
     Dates: start: 20161103, end: 20161130

REACTIONS (1)
  - Feeling cold [None]
